FAERS Safety Report 5228559-5 (Version None)
Quarter: 2007Q1

REPORT INFORMATION
  Report Type: 
  Country: None (occurrence: None)
  Receive Date: 20070205
  Receipt Date: 20070124
  Transmission Date: 20070707
  Serious: Yes (Other)
  Sender: FDA-Public Use
  Company Number: PHEH2007US01256

PATIENT
  Age: 51 Year
  Sex: Female

DRUGS (2)
  1. VIVELLE-DOT [Suspect]
     Indication: MENOPAUSAL SYMPTOMS
     Dosage: 0.0375 MG/DY, TWICE WEEKLY
     Route: 062
     Dates: start: 20070121
  2. VIVELLE-DOT [Suspect]
     Dosage: 0.0375 MG/DY, TWICE WEEKLY
     Route: 062

REACTIONS (2)
  - FOOT OPERATION [None]
  - HEADACHE [None]
